FAERS Safety Report 4732490-9 (Version None)
Quarter: 2005Q3

REPORT INFORMATION
  Report Type: 
  Country: None (occurrence: None)
  Receive Date: 20050803
  Receipt Date: 20031112
  Transmission Date: 20060218
  Serious: Yes (Hospitalization)
  Sender: FDA-Public Use
  Company Number: US-GLAXOSMITHKLINE-A0493325A

PATIENT
  Age: 9 Year
  Sex: Female

DRUGS (2)
  1. LAMICTAL [Suspect]
     Route: 048
  2. LAMISIL [Suspect]
     Route: 048

REACTIONS (3)
  - ADVERSE EVENT [None]
  - MEDICATION ERROR [None]
  - WRONG DRUG ADMINISTERED [None]
